FAERS Safety Report 12069224 (Version 2)
Quarter: 2016Q1

REPORT INFORMATION
  Report Type: Spontaneous
  Country: JP (occurrence: JP)
  Receive Date: 20160211
  Receipt Date: 20160229
  Transmission Date: 20160526
  Serious: Yes (Death, Hospitalization, Other)
  Sender: FDA-Public Use
  Company Number: JP-ASTRAZENECA-2016SE14084

PATIENT
  Sex: Male

DRUGS (2)
  1. ZYPREXA [Concomitant]
     Active Substance: OLANZAPINE
     Route: 048
  2. SEROQUEL [Suspect]
     Active Substance: QUETIAPINE FUMARATE
     Indication: SCHIZOPHRENIA
     Dosage: 100 MG ONCE DAILY, BEFORE SLEEPING
     Route: 048

REACTIONS (7)
  - Myelopathy [Unknown]
  - Somnolence [Unknown]
  - Intentional product misuse [Unknown]
  - Hepatic function abnormal [Unknown]
  - General physical health deterioration [Unknown]
  - Renal impairment [Unknown]
  - Death [Fatal]
